FAERS Safety Report 8375861-4 (Version None)
Quarter: 2012Q1

REPORT INFORMATION
  Report Type: 
  Country: None (occurrence: None)
  Receive Date: 20120323
  Receipt Date: 20110811
  Transmission Date: 20120608
  Serious: Yes (Other)
  Sender: FDA-Public Use
  Company Number: 163-21880-11072072

PATIENT
  Age: 69 Year
  Sex: Female
  Weight: 73 kg

DRUGS (1)
  1. REVLIMID [Suspect]
     Indication: MULTIPLE MYELOMA
     Dosage: 25 MG, DAILY FOR 21 DAYS, THEN 7 DAYS OFF, PO
     Route: 048
     Dates: start: 20110613

REACTIONS (7)
  - FATIGUE [None]
  - OEDEMA PERIPHERAL [None]
  - THROMBOSIS [None]
  - HYPERSOMNIA [None]
  - DRY MOUTH [None]
  - DYSGEUSIA [None]
  - ASTHENIA [None]
